FAERS Safety Report 25678286 (Version 1)
Quarter: 2025Q3

REPORT INFORMATION
  Report Type: Spontaneous
  Country: CN (occurrence: CN)
  Receive Date: 20250813
  Receipt Date: 20250813
  Transmission Date: 20251020
  Serious: Yes (Hospitalization)
  Sender: JOHNSON AND JOHNSON
  Company Number: CN-JNJFOC-20250807666

PATIENT
  Age: 74 Year
  Sex: Male

DRUGS (2)
  1. APALUTAMIDE [Suspect]
     Active Substance: APALUTAMIDE
     Indication: Prostate cancer
     Route: 048
  2. TRIPTORELIN PAMOATE [Concomitant]
     Active Substance: TRIPTORELIN PAMOATE
     Indication: Antiandrogen therapy

REACTIONS (3)
  - Neutropenia [Recovered/Resolved]
  - Eosinophilia [Recovered/Resolved]
  - Rash [Recovered/Resolved]
